FAERS Safety Report 22087891 (Version 1)
Quarter: 2023Q1

REPORT INFORMATION
  Report Type: Report from Study
  Country: CA (occurrence: CA)
  Receive Date: 20230313
  Receipt Date: 20230313
  Transmission Date: 20230417
  Serious: Yes (Other)
  Sender: FDA-Public Use
  Company Number: CA-TAKEDA-2022TUS057295

PATIENT
  Age: 31 Year
  Sex: Female

DRUGS (7)
  1. VEDOLIZUMAB [Suspect]
     Active Substance: VEDOLIZUMAB
     Indication: Colitis ulcerative
     Dosage: 300 MILLIGRAM
     Route: 042
     Dates: start: 20220513
  2. HUMIRA [Concomitant]
     Active Substance: ADALIMUMAB
     Dosage: 80 MILLIGRAM
     Route: 058
     Dates: start: 202006
  3. MESALAMINE [Concomitant]
     Active Substance: MESALAMINE
     Dosage: 4.8 GRAM
     Route: 048
     Dates: start: 2019
  4. Salofalk [Concomitant]
     Dosage: UNK
     Dates: start: 2018
  5. PREDNISONE [Concomitant]
     Active Substance: PREDNISONE
     Dosage: 10 MILLIGRAM
     Route: 048
  6. VENTOLIN [Concomitant]
     Active Substance: ALBUTEROL SULFATE
     Dosage: 100 MICROGRAM
     Route: 050
  7. RABEPRAZOLE [Concomitant]
     Active Substance: RABEPRAZOLE
     Dosage: UNK UNK, BID

REACTIONS (3)
  - Haemorrhagic diathesis [Unknown]
  - Coagulopathy [Unknown]
  - Haemorrhoids [Unknown]
